FAERS Safety Report 5053970-5 (Version None)
Quarter: 2006Q3

REPORT INFORMATION
  Report Type: 
  Country: None (occurrence: None)
  Receive Date: 20060712
  Receipt Date: 20060626
  Transmission Date: 20061208
  Serious: Yes (Other)
  Sender: FDA-Public Use
  Company Number: 2006-145017-NL

PATIENT
  Age: 47 Year
  Sex: Female

DRUGS (7)
  1. MIRTAZAPINE [Suspect]
     Dosage: 60 MG ORAL
     Route: 048
     Dates: start: 20050601, end: 20051101
  2. MIRTAZAPINE [Suspect]
     Dosage: 60 MG ORAL
     Route: 048
     Dates: start: 20051102
  3. VENLAFAXINE HCL [Suspect]
     Dosage: 75 MG/150 MG
     Dates: start: 20050601, end: 20051101
  4. VENLAFAXINE HCL [Suspect]
     Dosage: 75 MG/150 MG
     Dates: start: 20051102
  5. PANTOPRAZOLE SODIUM [Concomitant]
  6. METAMIZOLE SODIUM MONOHYDRATE [Concomitant]
  7. IBUPROFEN [Concomitant]

REACTIONS (2)
  - THROMBOPHLEBITIS [None]
  - VENOUS THROMBOSIS LIMB [None]
